FAERS Safety Report 21200101 (Version 3)
Quarter: 2022Q3

REPORT INFORMATION
  Report Type: Spontaneous
  Country: US (occurrence: US)
  Receive Date: 20220811
  Receipt Date: 20220902
  Transmission Date: 20221027
  Serious: No
  Sender: FDA-Public Use
  Company Number: US-ALIMERA SCIENCES INC.-US-A16013-22-000198

PATIENT
  Age: 78 Year
  Sex: Male

DRUGS (2)
  1. ILUVIEN [Suspect]
     Active Substance: FLUOCINOLONE ACETONIDE
     Indication: Product used for unknown indication
     Dosage: 0.25 MICROGRAM, QD, UNKNOWN EYE
     Route: 031
     Dates: start: 20220726
  2. EYLEA [Concomitant]
     Active Substance: AFLIBERCEPT
     Indication: Product used for unknown indication
     Dosage: UNKNOWN
     Route: 065

REACTIONS (3)
  - Device failure [Unknown]
  - Eye pain [Unknown]
  - Device placement issue [Unknown]

NARRATIVE: CASE EVENT DATE: 20220726
